FAERS Safety Report 19011340 (Version 2)
Quarter: 2021Q2

REPORT INFORMATION
  Report Type: Report from Study
  Country: GB (occurrence: GB)
  Receive Date: 20210315
  Receipt Date: 20210415
  Transmission Date: 20210717
  Serious: Yes (Hospitalization, Other)
  Sender: FDA-Public Use
  Company Number: GB-MYLANLABS-2020M1092768

PATIENT
  Age: 43 Year
  Sex: Female

DRUGS (24)
  1. TRASTUZUMAB. [Suspect]
     Active Substance: TRASTUZUMAB
     Indication: BREAST CANCER METASTATIC
     Dosage: 8 MILLIGRAM, Q3W
     Route: 042
     Dates: start: 20171108
  2. PERTUZUMAB. [Suspect]
     Active Substance: PERTUZUMAB
     Indication: BREAST CANCER METASTATIC
     Dosage: 840 MILLIGRAM, Q3W
     Route: 042
     Dates: start: 20181120
  3. OMEPRAZOLE. [Concomitant]
     Active Substance: OMEPRAZOLE
     Dosage: 40 MILLIGRAM, QD
     Route: 048
     Dates: start: 201710
  4. SIMVASTATIN. [Concomitant]
     Active Substance: SIMVASTATIN
     Dosage: 40 MILLIGRAM, QD
     Route: 048
  5. LINEZOLID. [Concomitant]
     Active Substance: LINEZOLID
     Indication: DEVICE RELATED INFECTION
     Dosage: 0.5 DAY
     Route: 048
     Dates: start: 20191125, end: 20191130
  6. DOCETAXEL. [Suspect]
     Active Substance: DOCETAXEL
     Indication: BREAST CANCER METASTATIC
     Dosage: 148 MILLIGRAM, Q3W
     Route: 042
     Dates: start: 20171108, end: 20180131
  7. QUETIAPINE. [Concomitant]
     Active Substance: QUETIAPINE
     Dosage: 1 DOSAGE FORM
     Route: 048
     Dates: start: 2020
  8. OXYCODON [Concomitant]
     Active Substance: OXYCODONE
     Indication: CANCER PAIN
     Dosage: 110 MILLIGRAM, 0.5 DAY
     Route: 048
  9. CALCIUM CARBONATE;COLECALCIFEROL;CO/11775101/ [Concomitant]
     Active Substance: CALCIUM CARBONATE\CHOLECALCIFEROL\MINERALS
     Dosage: 1 DOSAGE FORM, 0.5 DAY
     Route: 048
  10. SODIUM PICOSULPHATE [Concomitant]
     Active Substance: SODIUM PICOSULFATE
     Indication: CONSTIPATION
     Dosage: DOSE 10 OTHER (10 MG IN 10 ML)
     Route: 048
  11. METFORMIN [Concomitant]
     Active Substance: METFORMIN HYDROCHLORIDE
     Dosage: 500 MILLIGRAM, QD
     Route: 048
  12. QUETIAPINE. [Concomitant]
     Active Substance: QUETIAPINE
     Indication: DEPRESSED MOOD
     Dosage: 100 MILLIGRAM, QD
     Route: 048
     Dates: start: 2020
  13. METFORMIN [Concomitant]
     Active Substance: METFORMIN HYDROCHLORIDE
     Dosage: 1000 MILLIGRAM, QD
     Route: 048
  14. ONDANSETRON [Concomitant]
     Active Substance: ONDANSETRON
     Indication: VOMITING
     Dosage: 4 MILLIGRAM, QD
     Route: 042
     Dates: start: 20181002, end: 20181002
  15. MIRTAZAPINE. [Concomitant]
     Active Substance: MIRTAZAPINE
     Dosage: 45 MILLIGRAM, QD
     Route: 048
  16. ONDANSETRON [Concomitant]
     Active Substance: ONDANSETRON
     Indication: DIARRHOEA
  17. NITROFURANTOIN. [Concomitant]
     Active Substance: NITROFURANTOIN
     Indication: URINARY TRACT INFECTION
     Dosage: 50 MILLIGRAM, QD
     Route: 048
     Dates: start: 20181103, end: 20181109
  18. CLONAZEPAM. [Concomitant]
     Active Substance: CLONAZEPAM
     Indication: MUSCLE SPASMS
     Dosage: 250 MILLIGRAM, QD
     Route: 048
     Dates: start: 2020
  19. CLENIL                             /00212602/ [Concomitant]
     Active Substance: BECLOMETHASONE DIPROPIONATE
     Dosage: 2 DOSAGE FORM, QD, DOSE 2 PUFF, 0.5 DAY
     Route: 055
  20. RAMIPRIL. [Concomitant]
     Active Substance: RAMIPRIL
     Dosage: 1.25 MILLIGRAM, QD
     Route: 048
  21. MORPHINE [Concomitant]
     Active Substance: MORPHINE
     Indication: VOMITING
     Dosage: 5 MILLIGRAM, QD
     Route: 042
     Dates: start: 20181002, end: 20181002
  22. MORPHINE [Concomitant]
     Active Substance: MORPHINE
     Indication: DIARRHOEA
  23. SALBUTAMOL [Concomitant]
     Active Substance: ALBUTEROL
     Dosage: 1 DOSAGE FORM, PRN, DOSE 2 PUFF
     Route: 055
  24. LACTULOSE. [Concomitant]
     Active Substance: LACTULOSE
     Dosage: 10 MILLILITER, 0.5 DAY
     Route: 048

REACTIONS (5)
  - Diarrhoea [Recovered/Resolved]
  - Device related infection [Recovered/Resolved]
  - Vomiting [Recovered/Resolved]
  - Abdominal rigidity [Recovered/Resolved with Sequelae]
  - Muscle spasms [Recovered/Resolved with Sequelae]

NARRATIVE: CASE EVENT DATE: 20181001
